FAERS Safety Report 9996704 (Version 5)
Quarter: 2014Q4

REPORT INFORMATION
  Report Type: Report from Study
  Country: US (occurrence: US)
  Receive Date: 20140311
  Receipt Date: 20141215
  Transmission Date: 20150529
  Serious: No
  Sender: FDA-Public Use
  Company Number: US-SANOFI-AVENTIS-2013SA077821

PATIENT
  Age: 49 Year
  Sex: Female
  Weight: 61 kg

DRUGS (7)
  1. PROZAC [Concomitant]
     Active Substance: FLUOXETINE HYDROCHLORIDE
     Indication: ANXIETY
     Route: 065
     Dates: start: 2012
  2. HYOSCYAMINE [Concomitant]
     Active Substance: HYOSCYAMINE
     Indication: MUSCLE SPASMS
     Route: 065
     Dates: start: 2004
  3. AMPYRA [Suspect]
     Active Substance: DALFAMPRIDINE
     Route: 065
     Dates: start: 201405, end: 201409
  4. FLEXERIL [Concomitant]
     Active Substance: CYCLOBENZAPRINE HYDROCHLORIDE
     Indication: OSTEOARTHRITIS
     Route: 065
     Dates: start: 2001
  5. AUBAGIO [Suspect]
     Active Substance: TERIFLUNOMIDE
     Indication: MULTIPLE SCLEROSIS
     Route: 048
     Dates: start: 20130601
  6. MOBIC [Concomitant]
     Active Substance: MELOXICAM
     Indication: OSTEOARTHRITIS
     Route: 065
     Dates: start: 2010
  7. DOXEPIN [Concomitant]
     Active Substance: DOXEPIN
     Indication: SLEEP DISORDER
     Route: 065
     Dates: start: 201305

REACTIONS (17)
  - Condition aggravated [Unknown]
  - Blood urine present [Unknown]
  - Lethargy [Unknown]
  - Urine analysis abnormal [Recovered/Resolved]
  - Ill-defined disorder [Unknown]
  - Hyperhidrosis [Unknown]
  - Vitamin D decreased [Unknown]
  - Unevaluable event [Unknown]
  - Tremor [Unknown]
  - Back pain [Unknown]
  - Muscle spasticity [Unknown]
  - Back injury [Unknown]
  - Temperature intolerance [Unknown]
  - Hypoaesthesia [Unknown]
  - Central nervous system lesion [Unknown]
  - Nocturia [Not Recovered/Not Resolved]
  - Fatigue [Unknown]

NARRATIVE: CASE EVENT DATE: 201405
